FAERS Safety Report 4667187-7 (Version None)
Quarter: 2005Q2

REPORT INFORMATION
  Report Type: 
  Country: None (occurrence: None)
  Receive Date: 20050520
  Receipt Date: 20040728
  Transmission Date: 20051028
  Serious: Yes (Other)
  Sender: FDA-Public Use
  Company Number: PHEH2004US08175

PATIENT
  Age: 40 Year
  Sex: Female

DRUGS (8)
  1. TAXOL [Concomitant]
     Dosage: UNK, QW
  2. DECADRON [Concomitant]
     Dosage: 8 MG, QW
     Route: 042
  3. TRASTUZUMAB [Concomitant]
     Dosage: 477 MG, TIW
     Route: 042
     Dates: start: 19981001, end: 20040701
  4. ZOMETA [Suspect]
     Indication: METASTASES TO BONE
     Dosage: 4 MG, QMO
     Route: 042
     Dates: start: 20011009, end: 20040713
  5. DEXAMETHASONE [Concomitant]
     Dates: start: 20040329, end: 20040615
  6. CARBOPLATIN [Concomitant]
     Dosage: 290 MG, QW
     Route: 042
     Dates: start: 20040130, end: 20040301
  7. GEMZAR [Concomitant]
     Dates: start: 20030722, end: 20040130
  8. VINORELBINE TARTRATE [Concomitant]
     Dates: start: 20030606, end: 20030722

REACTIONS (3)
  - OSTEONECROSIS [None]
  - PAIN IN JAW [None]
  - TOOTH EXTRACTION [None]
